FAERS Safety Report 21517217 (Version 2)
Quarter: 2022Q4

REPORT INFORMATION
  Report Type: Spontaneous
  Country: ES (occurrence: ES)
  Receive Date: 20221028
  Receipt Date: 20221109
  Transmission Date: 20230112
  Serious: Yes (Other)
  Sender: FDA-Public Use
  Company Number: ES-KOREA IPSEN Pharma-2022-29237

PATIENT
  Age: 33 Year
  Sex: Female

DRUGS (2)
  1. BOTULINUM TOXIN TYPE A [Suspect]
     Active Substance: BOTULINUM TOXIN TYPE A
     Indication: Skin wrinkling
     Dosage: RIGHT FOREHEAD 8 U AND LEFT 2-3U, FROWN LINE 6-8 U AND CROW^S FEET 6-8U
     Route: 065
     Dates: start: 20221024, end: 20221024
  2. BOTULINUM TOXIN TYPE A [Suspect]
     Active Substance: BOTULINUM TOXIN TYPE A
     Indication: Skin wrinkling

REACTIONS (5)
  - Blindness [Recovered/Resolved]
  - Eyelid ptosis [Recovering/Resolving]
  - Keratitis [Not Recovered/Not Resolved]
  - Conjunctivitis [Not Recovered/Not Resolved]
  - Accidental exposure to product [Unknown]

NARRATIVE: CASE EVENT DATE: 20221024
